FAERS Safety Report 5423824-0 (Version None)
Quarter: 2007Q3

REPORT INFORMATION
  Report Type: 
  Country: None (occurrence: None)
  Receive Date: 20070823
  Receipt Date: 20070816
  Transmission Date: 20080115
  Serious: Yes (Hospitalization, Other)
  Sender: FDA-Public Use
  Company Number: US-ELI_LILLY_AND_COMPANY-US200708003345

PATIENT
  Age: 60 Year
  Sex: Female

DRUGS (4)
  1. HUMULIN N [Suspect]
     Indication: DIABETES MELLITUS
     Dosage: 30 U, EACH MORNING
     Dates: start: 19870101
  2. HUMULIN N [Suspect]
     Dosage: 25 U, EACH EVENING
     Dates: start: 19870101
  3. HUMULIN R [Suspect]
     Indication: DIABETES MELLITUS
     Dosage: 45 U, EACH MORNING
     Dates: start: 19870101
  4. HUMULIN R [Suspect]
     Dosage: 30 U, EACH EVENING

REACTIONS (4)
  - BLOOD GLUCOSE DECREASED [None]
  - BLOOD GLUCOSE INCREASED [None]
  - CARDIAC DISORDER [None]
  - CARDIOMYOPATHY [None]
